FAERS Safety Report 7786782-X (Version None)
Quarter: 2011Q3

REPORT INFORMATION
  Report Type: 
  Country: None (occurrence: None)
  Receive Date: 20110929
  Receipt Date: 20110926
  Transmission Date: 20111222
  Serious: Yes (Hospitalization, Other)
  Sender: FDA-Public Use
  Company Number: FR-PFIZER INC-2011227912

PATIENT
  Age: 74 Year
  Sex: Male

DRUGS (3)
  1. LYRICA [Suspect]
     Indication: PAIN
     Dosage: 500 MG, 1X/DAY
     Route: 048
     Dates: start: 20110828, end: 20110906
  2. PREVISCAN [Concomitant]
     Dosage: UNK
  3. PRAVIGARD PAC (COPACKAGED) [Concomitant]
     Dosage: UNK

REACTIONS (4)
  - GAIT DISTURBANCE [None]
  - DIZZINESS [None]
  - CONFUSIONAL STATE [None]
  - FALL [None]
